FAERS Safety Report 24013765 (Version 1)
Quarter: 2024Q2

REPORT INFORMATION
  Report Type: Spontaneous
  Country: US (occurrence: US)
  Receive Date: 20240626
  Receipt Date: 20240626
  Transmission Date: 20240715
  Serious: No
  Sender: FDA-Public Use
  Company Number: US-ALCON LABORATORIES-ALC2023US003486

PATIENT
  Sex: Female

DRUGS (3)
  1. PATADAY TWICE A DAY RELIEF [Suspect]
     Active Substance: OLOPATADINE HYDROCHLORIDE
     Dosage: ONE DROP IN EACH EYE
     Route: 047
  2. PATADAY TWICE A DAY RELIEF [Suspect]
     Active Substance: OLOPATADINE HYDROCHLORIDE
     Indication: Eye pruritus
     Dosage: ONE DROP IN EACH EYE ONCE A DAY
     Route: 047
  3. CLARITIN [Concomitant]
     Active Substance: LORATADINE
     Indication: Product used for unknown indication
     Dosage: UNK
     Route: 065

REACTIONS (3)
  - Product use issue [Unknown]
  - Drug ineffective [Unknown]
  - Somnolence [Not Recovered/Not Resolved]
